FAERS Safety Report 11437394 (Version 1)
Quarter: 2015Q3

REPORT INFORMATION
  Report Type: Spontaneous
  Country: US (occurrence: US)
  Receive Date: 20150821
  Receipt Date: 20150821
  Transmission Date: 20151125
  Serious: Yes (Death)
  Sender: FDA-Public Use
  Company Number: US-ELI_LILLY_AND_COMPANY-US200704004474

PATIENT
  Age: 17 Year
  Sex: Male
  Weight: 90.7 kg

DRUGS (2)
  1. CYMBALTA [Suspect]
     Active Substance: DULOXETINE HYDROCHLORIDE
     Indication: MAJOR DEPRESSION
     Dosage: 30 MG, EACH EVENING
     Dates: start: 20070206, end: 20070209
  2. WELLBUTRIN XL [Concomitant]
     Active Substance: BUPROPION HYDROCHLORIDE
     Dosage: 300 MG, UNK
     Dates: start: 200611

REACTIONS (2)
  - Completed suicide [Fatal]
  - Sedation [Unknown]

NARRATIVE: CASE EVENT DATE: 200702
